FAERS Safety Report 16043845 (Version 1)
Quarter: 2019Q1

REPORT INFORMATION
  Report Type: Spontaneous
  Country: US (occurrence: US)
  Receive Date: 20190306
  Receipt Date: 20190306
  Transmission Date: 20190418
  Serious: Yes (Other)
  Sender: FDA-Public Use
  Company Number: US-SA-2018SA113401

PATIENT
  Age: 56 Year
  Sex: Female
  Weight: 57.12 kg

DRUGS (11)
  1. ACETYLSALICYLIC ACID [Concomitant]
     Active Substance: ASPIRIN
  2. HUMALOG [Concomitant]
     Active Substance: INSULIN LISPRO
  3. METFORMIN [Concomitant]
     Active Substance: METFORMIN HYDROCHLORIDE
  4. TAXOTERE [Suspect]
     Active Substance: DOCETAXEL
     Dosage: 110 MG,Q3W
     Route: 042
     Dates: start: 20160216, end: 20160216
  5. FLUCONAZOLE. [Concomitant]
     Active Substance: FLUCONAZOLE
  6. SERTRALINE [Concomitant]
     Active Substance: SERTRALINE HYDROCHLORIDE
  7. CYCLOBENZAPRINE. [Concomitant]
     Active Substance: CYCLOBENZAPRINE
  8. LISINOPRIL. [Concomitant]
     Active Substance: LISINOPRIL
  9. TAXOTERE [Suspect]
     Active Substance: DOCETAXEL
     Indication: BREAST CANCER FEMALE
     Dosage: 110 MG,Q3W
     Route: 042
     Dates: start: 20151106, end: 20151106
  10. HERCEPTIN [Concomitant]
     Active Substance: TRASTUZUMAB
  11. PERJETA [Concomitant]
     Active Substance: PERTUZUMAB

REACTIONS (2)
  - Alopecia [Recovering/Resolving]
  - Psychological trauma [Unknown]

NARRATIVE: CASE EVENT DATE: 20170623
